FAERS Safety Report 9375963 (Version 1)
Quarter: 2013Q2

REPORT INFORMATION
  Report Type: Spontaneous
  Country: US (occurrence: None)
  Receive Date: 20130628
  Receipt Date: 20130628
  Transmission Date: 20140414
  Serious: Yes (Death, Hospitalization)
  Sender: FDA-Public Use
  Company Number: None

PATIENT
  Age: 26 Year
  Sex: Female

DRUGS (12)
  1. LETAIRIS [Suspect]
     Indication: PULMONARY HYPERTENSION
     Dosage: 5MG QD ORALLY
     Route: 048
     Dates: start: 20130522, end: 20130624
  2. LASIX [Concomitant]
  3. K-TABS [Concomitant]
  4. DIGOXIN [Concomitant]
  5. WARFARIN [Concomitant]
  6. PREDNISONE [Concomitant]
  7. IMURAN [Concomitant]
  8. EFFEXOR [Concomitant]
  9. ZYPXEXA [Concomitant]
  10. SERAX [Concomitant]
  11. AMBIEN [Concomitant]
  12. FERROUS SULFATE [Concomitant]

REACTIONS (7)
  - Cardiac arrest [None]
  - Confusional state [None]
  - Treatment noncompliance [None]
  - Anaemia [None]
  - Pulmonary hypertension [None]
  - Gastric haemorrhage [None]
  - Perirectal abscess [None]
